FAERS Safety Report 5369057-8 (Version None)
Quarter: 2007Q2

REPORT INFORMATION
  Report Type: 
  Country: None (occurrence: None)
  Receive Date: 20070625
  Receipt Date: 20070202
  Transmission Date: 20071010
  Serious: No
  Sender: FDA-Public Use
  Company Number: US-ASTRAZENECA-2007UW02241

PATIENT
  Age: 82 Year
  Sex: Female
  Weight: 76.7 kg

DRUGS (10)
  1. CRESTOR [Suspect]
     Indication: BLOOD CHOLESTEROL INCREASED
     Route: 048
     Dates: start: 20070120
  2. ALLOPURINOL [Concomitant]
  3. LISINOPRIL [Concomitant]
     Route: 048
  4. GLYBURIDE [Concomitant]
  5. LEVOTHYROXINE SODIUM [Concomitant]
  6. METOPROLOL SUCCINATE [Concomitant]
     Route: 048
  7. PROTONIX [Concomitant]
  8. AMLODIPINE [Concomitant]
  9. CHROMAGEN [Concomitant]
  10. FOLATE [Concomitant]

REACTIONS (1)
  - MEDICATION RESIDUE [None]
